FAERS Safety Report 24293098 (Version 1)
Quarter: 2024Q3

REPORT INFORMATION
  Report Type: Spontaneous
  Country: US (occurrence: None)
  Receive Date: 20240906
  Receipt Date: 20240906
  Transmission Date: 20241016
  Serious: No
  Sender: DOMPE FARMACEUTICI
  Company Number: US-FARMAPROD-202308-202311-3499

PATIENT
  Sex: Male
  Weight: 131.54 kg

DRUGS (3)
  1. OXERVATE [Suspect]
     Active Substance: CENEGERMIN-BKBJ
     Indication: Neurotrophic keratopathy
     Route: 047
     Dates: start: 20231120
  2. OXERVATE [Suspect]
     Active Substance: CENEGERMIN-BKBJ
  3. LYSTEDA [Concomitant]
     Active Substance: TRANEXAMIC ACID

REACTIONS (14)
  - Eye irritation [Not Recovered/Not Resolved]
  - Ocular discomfort [Unknown]
  - Accidental overdose [Unknown]
  - Ocular hyperaemia [Unknown]
  - Eye swelling [Unknown]
  - Eye irritation [Unknown]
  - Product use issue [Unknown]
  - Eye pain [Unknown]
  - Pain [Unknown]
  - Neuralgia [Unknown]
  - Muscle twitching [Unknown]
  - Lacrimation increased [Unknown]
  - Dermatitis [Unknown]
  - Condition aggravated [Unknown]
